FAERS Safety Report 7922689-2 (Version None)
Quarter: 2011Q4

REPORT INFORMATION
  Report Type: 
  Country: None (occurrence: None)
  Receive Date: 20111117
  Receipt Date: 20110302
  Transmission Date: 20120403
  Serious: No
  Sender: FDA-Public Use
  Company Number: US-ALLERGAN-1104221US

PATIENT
  Age: 81 Year
  Sex: Female

DRUGS (2)
  1. BETAGAN [Concomitant]
     Indication: ABNORMAL SENSATION IN EYE
     Dosage: 1 GTT, QD
     Route: 047
  2. COMBIGAN [Suspect]
     Indication: PRODUCT USED FOR UNKNOWN INDICATION
     Dosage: UNK GTT, QPM
     Route: 047

REACTIONS (1)
  - CONSTIPATION [None]
